FAERS Safety Report 17112987 (Version 3)
Quarter: 2019Q4

REPORT INFORMATION
  Report Type: Report from Study
  Country: US (occurrence: US)
  Receive Date: 20191204
  Receipt Date: 20191224
  Transmission Date: 20200122
  Serious: Yes (Death, Hospitalization)
  Sender: FDA-Public Use
  Company Number: US-ACTELION-A-US2015-127416

PATIENT
  Age: 59 Year
  Sex: Female

DRUGS (17)
  1. AZITHROMYCIN ANHYDROUS. [Concomitant]
     Active Substance: AZITHROMYCIN ANHYDROUS
     Dosage: 250 MG
     Dates: start: 20190314
  2. CALCIUM CARBONATE. [Concomitant]
     Active Substance: CALCIUM CARBONATE
     Dosage: 600 MG
     Dates: start: 20190314
  3. FAMOTIDINE. [Concomitant]
     Active Substance: FAMOTIDINE
     Dosage: 20 MG
     Dates: start: 20190314
  4. OXYGEN. [Concomitant]
     Active Substance: OXYGEN
     Dosage: 40% AT 6 L
  5. AMIODARONE [Suspect]
     Active Substance: AMIODARONE
     Indication: PRODUCT USED FOR UNKNOWN INDICATION
     Route: 065
  6. OPSUMIT [Suspect]
     Active Substance: MACITENTAN
     Indication: PULMONARY ARTERIAL HYPERTENSION
     Dosage: 10 MG, QD
     Route: 048
     Dates: start: 20150708, end: 20191123
  7. TYVASO [Concomitant]
     Active Substance: TREPROSTINIL
  8. SULFAMETHOXAZOL W/TRIMETOPRIM [Concomitant]
     Active Substance: SULFAMETHOXAZOLE\TRIMETHOPRIM
     Dosage: UNK
     Dates: start: 20190314
  9. MYCOPHENOLATE [Concomitant]
     Active Substance: MYCOPHENOLIC ACID
     Dosage: 500 MG
  10. LIDOCAINE. [Suspect]
     Active Substance: LIDOCAINE
     Indication: PRODUCT USED FOR UNKNOWN INDICATION
     Route: 065
  11. FOLIC ACID. [Concomitant]
     Active Substance: FOLIC ACID
     Dosage: 400 MCG
     Dates: start: 20190314
  12. VITAMIN D3 [Concomitant]
     Active Substance: CHOLECALCIFEROL
     Dosage: 5000 UNITS
  13. AMLODIPINE BENAZEPRIL [Concomitant]
     Active Substance: AMLODIPINE BESYLATE\BENAZEPRIL HYDROCHLORIDE
     Dosage: UNK
     Dates: start: 20190514
  14. OXYGEN. [Concomitant]
     Active Substance: OXYGEN
     Dosage: 10-12 L/MIN
  15. ASPIRIN. [Concomitant]
     Active Substance: ASPIRIN
     Dosage: 81 MG
     Dates: start: 20190314
  16. LOVASTATIN. [Concomitant]
     Active Substance: LOVASTATIN
     Dosage: 40 MG
     Dates: start: 20190314
  17. K-DUR [Concomitant]
     Active Substance: POTASSIUM CHLORIDE
     Dosage: 20 MEQ

REACTIONS (28)
  - Malaise [Unknown]
  - Fluid overload [Fatal]
  - Dilatation ventricular [Recovered/Resolved]
  - Interstitial lung disease [Unknown]
  - Pneumonia viral [Recovered/Resolved]
  - Oxygen saturation decreased [Unknown]
  - Pulmonary arterial hypertension [Unknown]
  - Back pain [Not Recovered/Not Resolved]
  - Cardioversion [Unknown]
  - Oedema peripheral [Not Recovered/Not Resolved]
  - Pulmonary arterial pressure abnormal [Unknown]
  - Condition aggravated [Unknown]
  - Lung opacity [Recovered/Resolved]
  - Rhinovirus infection [Recovered/Resolved]
  - Hypotension [Recovered/Resolved]
  - Oedema [Not Recovered/Not Resolved]
  - Ventricular tachycardia [Unknown]
  - Pulmonary oedema [Recovered/Resolved]
  - Hypoxia [Not Recovered/Not Resolved]
  - Pain in extremity [Not Recovered/Not Resolved]
  - Polyuria [Unknown]
  - Pulmonary arterial pressure increased [Recovered/Resolved]
  - Epistaxis [Not Recovered/Not Resolved]
  - Dyspnoea [Fatal]
  - Right ventricular failure [Fatal]
  - Acute respiratory failure [Fatal]
  - Right ventricular hypertrophy [Recovered/Resolved]
  - Fluid retention [Not Recovered/Not Resolved]

NARRATIVE: CASE EVENT DATE: 20150924
